FAERS Safety Report 7309259-4 (Version None)
Quarter: 2011Q1

REPORT INFORMATION
  Report Type: 
  Country: None (occurrence: None)
  Receive Date: 20110223
  Receipt Date: 20110216
  Transmission Date: 20110831
  Serious: Yes (Death, Hospitalization, Other)
  Sender: FDA-Public Use
  Company Number: JP-PFIZER INC-2011013387

PATIENT
  Age: 83 Year
  Sex: Male

DRUGS (16)
  1. OLMETEC [Concomitant]
     Indication: HYPERTENSION
     Dosage: 20 MG, 1X/DAY
     Route: 048
     Dates: start: 20080610, end: 20110118
  2. UBRETID [Concomitant]
     Dosage: 5 MG/DAY
     Route: 048
     Dates: end: 20110118
  3. LYRICA [Suspect]
     Indication: BACK PAIN
     Dosage: 75 MG, 2X/DAY
     Route: 048
     Dates: start: 20101225, end: 20110118
  4. NITOROL R [Concomitant]
     Indication: ANGINA PECTORIS
     Dosage: 20 MG, 2X/DAY
     Route: 048
     Dates: start: 20051017, end: 20110118
  5. PROMAC /JPN/ [Concomitant]
     Indication: GASTROOESOPHAGEAL REFLUX DISEASE
     Dosage: 75 MG, 2X/DAY
     Route: 048
     Dates: start: 20060608, end: 20110118
  6. CALBLOCK [Concomitant]
     Indication: HYPERTENSION
     Dosage: 8 MG, 2X/DAY
     Route: 048
     Dates: start: 20080610, end: 20110118
  7. DEPAS [Concomitant]
     Indication: INSOMNIA
     Dosage: 0.5 MG, 1X/DAY
     Route: 048
     Dates: start: 20051017, end: 20110118
  8. BIO THREE [Concomitant]
     Indication: CONSTIPATION
     Dosage: 1 G, 1X/DAY
     Route: 048
     Dates: start: 20051017, end: 20110118
  9. NEUROTROPIN [Concomitant]
     Indication: BACK PAIN
     Dosage: UNK %, 2X/DAY
     Route: 048
     Dates: start: 20100913, end: 20110118
  10. LASIX [Suspect]
     Indication: CARDIAC FAILURE
     Dosage: 20 MG, 1X/DAY
     Route: 048
     Dates: start: 20101206, end: 20110118
  11. MAGNESIUM OXIDE [Concomitant]
     Indication: CONSTIPATION
     Dosage: 1 G, 1X/DAY
     Route: 048
     Dates: start: 20051017, end: 20110118
  12. PANALDINE [Concomitant]
     Indication: CEREBRAL INFARCTION
     Dosage: 100 MG, 2X/DAY
     Route: 048
     Dates: start: 20080610, end: 20110118
  13. TAKEPRON [Concomitant]
     Indication: GASTROOESOPHAGEAL REFLUX DISEASE
     Dosage: 15 MG, 1X/DAY
     Route: 048
     Dates: start: 20051017, end: 20110118
  14. BICALUTAMIDE [Concomitant]
     Dosage: 80 MG/DAY
     Route: 048
     Dates: end: 20110118
  15. SIGMART [Concomitant]
     Indication: ANGINA PECTORIS
     Dosage: 5 MG, 3X/DAY
     Route: 048
     Dates: start: 20051017, end: 20110118
  16. TAMSULOSIN HCL [Concomitant]
     Dosage: 0.2 MG/DAY
     Route: 048
     Dates: end: 20110118

REACTIONS (1)
  - RESPIRATORY FAILURE [None]
